FAERS Safety Report 6894170-3 (Version None)
Quarter: 2010Q3

REPORT INFORMATION
  Report Type: 
  Country: None (occurrence: None)
  Receive Date: 20100802
  Receipt Date: 20100726
  Transmission Date: 20110219
  Serious: Yes (Other)
  Sender: FDA-Public Use
  Company Number: GB-JNJFOC-20100705204

PATIENT
  Age: 9 Year
  Sex: Female

DRUGS (2)
  1. NIZORAL [Suspect]
     Route: 061
  2. NIZORAL [Suspect]
     Indication: PRODUCT USED FOR UNKNOWN INDICATION
     Route: 061

REACTIONS (2)
  - ALOPECIA [None]
  - TRICHORRHEXIS [None]
